FAERS Safety Report 7333504-2 (Version None)
Quarter: 2011Q1

REPORT INFORMATION
  Report Type: 
  Country: None (occurrence: None)
  Receive Date: 20110304
  Receipt Date: 20110225
  Transmission Date: 20110831
  Serious: Yes (Other)
  Sender: FDA-Public Use
  Company Number: US-AMGEN-USASP2011011179

PATIENT
  Age: 51 Year
  Sex: Female

DRUGS (2)
  1. ENBREL [Suspect]
     Indication: PSORIATIC ARTHROPATHY
     Dosage: 50 MG, QWK
     Dates: start: 20100112
  2. ENBREL [Suspect]
     Indication: PSORIASIS

REACTIONS (5)
  - LIMB INJURY [None]
  - TENDON RUPTURE [None]
  - ATRIAL FLUTTER [None]
  - NASAL CONGESTION [None]
  - CONTUSION [None]
